FAERS Safety Report 16973800 (Version 2)
Quarter: 2020Q2

REPORT INFORMATION
  Report Type: Spontaneous
  Country: DE (occurrence: DE)
  Receive Date: 20191030
  Receipt Date: 20200416
  Transmission Date: 20200713
  Serious: Yes (Death, Other)
  Sender: FDA-Public Use
  Company Number: DE-AUROBINDO-AUR-APL-2019-070241

PATIENT
  Age: 33 Month
  Sex: Male
  Weight: 10.3 kg

DRUGS (14)
  1. METHOTREXATE. [Concomitant]
     Active Substance: METHOTREXATE
     Indication: GRAFT VERSUS HOST DISEASE
     Dosage: 10 MG/M2, UNK (DAY +1, + 3, + 6)
     Route: 065
     Dates: start: 2007
  2. CYCLOSPORIN A [Concomitant]
     Active Substance: CYCLOSPORINE
     Indication: GRAFT VERSUS HOST DISEASE
     Dosage: 3 MG/KG BW, TARGET LEVEL 150-200 NG/ML
     Route: 065
     Dates: start: 2007
  3. THYMOGLOBULIN [Suspect]
     Active Substance: LAPINE T-LYMPHOCYTE IMMUNE GLOBULIN
     Indication: COMBINED IMMUNODEFICIENCY
     Dosage: 10 MILLIGRAM/KILOGRAM (BW (DIVIDED 1 ? 1 MG/KG BW, 3 X3 MG/KG BW).
     Route: 065
     Dates: start: 2007
  4. METHYLPREDNISOLONE. [Concomitant]
     Active Substance: METHYLPREDNISOLONE
     Indication: GRAFT VERSUS HOST DISEASE
     Dosage: 10 MILLIGRAM/KILOGRAM, ONCE A DAY (BW)
     Route: 065
     Dates: start: 2007
  5. FLUDARABINE [Suspect]
     Active Substance: FLUDARABINE PHOSPHATE
     Indication: COMBINED IMMUNODEFICIENCY
     Dosage: 40 MILLIGRAM/SQ. METER, (X4)
     Route: 065
     Dates: start: 2007
  6. PREDNISOLONE. [Concomitant]
     Active Substance: PREDNISOLONE
     Indication: GRAFT VERSUS HOST DISEASE
     Dosage: 5 MILLIGRAM/KILOGRAM (BW)
     Route: 065
     Dates: start: 2007
  7. AMPHOTERICIN B. [Concomitant]
     Active Substance: AMPHOTERICIN B
     Indication: GRAFT VERSUS HOST DISEASE
     Dosage: UNK
     Route: 065
     Dates: start: 2007
  8. INFLIXIMAB [Concomitant]
     Active Substance: INFLIXIMAB
     Indication: GRAFT VERSUS HOST DISEASE
     Dosage: UNK
     Route: 065
  9. MELPHALAN. [Suspect]
     Active Substance: MELPHALAN
     Indication: COMBINED IMMUNODEFICIENCY
     Dosage: UNK
     Route: 065
  10. METHYLPREDNISOLONE. [Concomitant]
     Active Substance: METHYLPREDNISOLONE
     Dosage: 5 MILLIGRAM/KILOGRAM (BW)
     Route: 065
     Dates: start: 2007
  11. MELPHALAN. [Suspect]
     Active Substance: MELPHALAN
     Indication: GRAFT VERSUS HOST DISEASE
     Dosage: 70 MILLIGRAM/SQ. METER, (2X)
     Route: 065
     Dates: start: 2007
  12. TACROLIMUS. [Concomitant]
     Active Substance: TACROLIMUS
     Indication: GRAFT VERSUS HOST DISEASE
     Dosage: UNK
     Route: 065
     Dates: start: 2007
  13. THIOTEPA. [Suspect]
     Active Substance: THIOTEPA
     Indication: COMBINED IMMUNODEFICIENCY
     Dosage: 10 MILLIGRAM/KILOGRAM ((1X10 MG/KG BW)
     Route: 065
     Dates: start: 2007
  14. CASPOFUNGIN [Concomitant]
     Active Substance: CASPOFUNGIN
     Indication: SYSTEMIC CANDIDA
     Dosage: UNK
     Route: 065

REACTIONS (15)
  - Hypertension [Unknown]
  - Diarrhoea [Unknown]
  - Transfusion-related acute lung injury [Unknown]
  - Somnolence [Unknown]
  - Cerebral aspergillosis [Fatal]
  - Pulmonary haemorrhage [Unknown]
  - Acute graft versus host disease in skin [Unknown]
  - Acute kidney injury [Unknown]
  - Hemiparesis [Unknown]
  - Toxicity to various agents [Unknown]
  - Diarrhoea haemorrhagic [Unknown]
  - Aplasia [Unknown]
  - Epstein-Barr virus infection [Unknown]
  - Penile ulceration [Unknown]
  - Mucosal ulceration [Unknown]
